FAERS Safety Report 13726833 (Version 5)
Quarter: 2017Q3

REPORT INFORMATION
  Report Type: Report from Study
  Country: None (occurrence: GB)
  Receive Date: 20170707
  Receipt Date: 20170726
  Transmission Date: 20171127
  Serious: Yes (Hospitalization)
  Sender: FDA-Public Use
  Company Number: GB-ABBVIE-17K-167-2030838-00

PATIENT
  Age: 77 Year
  Sex: Male

DRUGS (2)
  1. DUODOPA [Suspect]
     Active Substance: CARBIDOPA\LEVODOPA
     Dosage: 3.8 MLS
     Route: 050
     Dates: start: 201707
  2. DUODOPA [Suspect]
     Active Substance: CARBIDOPA\LEVODOPA
     Indication: PARKINSON^S DISEASE
     Dosage: 100ML CASSETTE,  4.0MLS/HR
     Route: 050
     Dates: end: 20170702

REACTIONS (8)
  - Tremor [Unknown]
  - Dyskinesia [Recovering/Resolving]
  - Fatigue [Unknown]
  - Device issue [Unknown]
  - Communication disorder [Unknown]
  - Device issue [Recovered/Resolved]
  - Drug ineffective [Unknown]
  - Parosmia [Unknown]

NARRATIVE: CASE EVENT DATE: 2017
